FAERS Safety Report 8890320 (Version 1)
Quarter: 2012Q4

REPORT INFORMATION
  Report Type: 
  Country: CA (occurrence: CA)
  Receive Date: 20121106
  Receipt Date: 20121106
  Transmission Date: 20130627
  Serious: Yes (Death, Hospitalization, Other)
  Sender: FDA-Public Use
  Company Number: PHMT2006CA00500

PATIENT
  Sex: Male

DRUGS (12)
  1. SANDOSTATIN LAR [Suspect]
     Indication: CARCINOID TUMOUR
     Dosage: 20 mg, every 4 weeks
     Dates: start: 20041120
  2. ALTACE [Concomitant]
  3. ASA [Concomitant]
  4. DIAMICRON [Concomitant]
  5. LASIX [Concomitant]
     Dosage: 60 mg, QD
  6. MACROBID [Concomitant]
     Indication: URINARY TRACT INFECTION
  7. METFORMIN HYDROCHLORIDE [Concomitant]
  8. METOPROLOL [Concomitant]
  9. RANOLAZINE [Concomitant]
  10. SYNTHROID [Concomitant]
  11. ZAROXOLYN [Concomitant]
  12. ATORVASTATIN CALCIUM [Concomitant]

REACTIONS (14)
  - Death [Fatal]
  - Infection [Unknown]
  - Renal failure [Unknown]
  - Oedema peripheral [Unknown]
  - Intestinal perforation [Unknown]
  - Post procedural haemorrhage [Not Recovered/Not Resolved]
  - Asthenia [Unknown]
  - Chest discomfort [Recovering/Resolving]
  - Cardiac valve disease [Unknown]
  - Hyperglycaemia [Unknown]
  - Haemoglobin decreased [Unknown]
  - Flushing [Unknown]
  - Fatigue [Unknown]
  - Blood glucose decreased [Unknown]
